FAERS Safety Report 10609427 (Version 1)
Quarter: 2014Q4

REPORT INFORMATION
  Report Type: Spontaneous
  Country: FR (occurrence: FR)
  Receive Date: 20141126
  Receipt Date: 20141126
  Transmission Date: 20150529
  Serious: Yes (Hospitalization)
  Sender: FDA-Public Use
  Company Number: FR-ELI_LILLY_AND_COMPANY-FR201411005531

PATIENT
  Age: 76 Year
  Sex: Female

DRUGS (1)
  1. PROZAC [Suspect]
     Active Substance: FLUOXETINE HYDROCHLORIDE
     Indication: PRODUCT USED FOR UNKNOWN INDICATION
     Dosage: 20 MG, QD
     Route: 048
     Dates: start: 2000, end: 201311

REACTIONS (4)
  - Dilatation ventricular [Unknown]
  - Right ventricular failure [Unknown]
  - Tricuspid valve incompetence [Unknown]
  - Right atrial dilatation [Unknown]

NARRATIVE: CASE EVENT DATE: 201304
